FAERS Safety Report 24670896 (Version 1)
Quarter: 2024Q4

REPORT INFORMATION
  Report Type: Report from Study
  Country: JP (occurrence: None)
  Receive Date: 20241127
  Receipt Date: 20241127
  Transmission Date: 20250114
  Serious: Yes (Life-Threatening, Other)
  Sender: ALEXION PHARMACEUTICALS
  Company Number: JP-ASTRAZENECA-240133009_064320_P_1

PATIENT
  Age: 68 Year
  Weight: 39 kg

DRUGS (10)
  1. ANDEXXA [Suspect]
     Active Substance: ANDEXANET ALFA
     Indication: Pelvic fracture
     Dosage: 880 MILLIGRAM
  2. UNSPECIFIED INGREDIENT [Concomitant]
     Active Substance: UNSPECIFIED INGREDIENT
     Dosage: DOSE UNKNOWN
     Route: 065
  3. EDOXABAN TOSYLATE [Concomitant]
     Active Substance: EDOXABAN TOSYLATE
     Indication: Ischaemic stroke
     Route: 065
  4. HEPARINOID [Concomitant]
     Dosage: CONTINUAOUS ADMINISTRATION, DOSE UNKNOWN
     Route: 065
  5. LANDIOLOL HYDROCHLORIDE [Concomitant]
     Active Substance: LANDIOLOL HYDROCHLORIDE
     Indication: Tachycardia
     Dosage: CONTINUAOUS ADMINISTRATION, DOSE UNKNOWN
     Route: 065
  6. FENTANYL [Concomitant]
     Active Substance: FENTANYL
     Indication: Analgesic therapy
     Dosage: CONTINUAOUS ADMINISTRATION, DOSE UNKNOWN
     Route: 065
  7. MIDAZOLAM [Concomitant]
     Active Substance: MIDAZOLAM
     Indication: Analgesic therapy
     Dosage: CONTINUAOUS ADMINISTRATION, DOSE UNKNOWN
     Route: 065
  8. PRECEDEX [Concomitant]
     Active Substance: DEXMEDETOMIDINE HYDROCHLORIDE
     Indication: Sedation
     Dosage: CONTINUAOUS ADMINISTRATION, DOSE UNKNOWN
     Route: 065
  9. LEVETIRACETAM [Concomitant]
     Active Substance: LEVETIRACETAM
     Indication: Prophylaxis
     Route: 065
  10. OMEPRAZOLE [Concomitant]
     Active Substance: OMEPRAZOLE
     Route: 065

REACTIONS (2)
  - Aortic occlusion [Recovered/Resolved with Sequelae]
  - Pneumonia [Recovered/Resolved]
